FAERS Safety Report 14020329 (Version 1)
Quarter: 2017Q3

REPORT INFORMATION
  Report Type: Spontaneous
  Country: US (occurrence: US)
  Receive Date: 20170928
  Receipt Date: 20170928
  Transmission Date: 20171128
  Serious: No
  Sender: FDA-Public Use
  Company Number: US-TEVA-811132ACC

PATIENT
  Sex: Female
  Weight: 49.94 kg

DRUGS (2)
  1. IRON [Concomitant]
     Active Substance: IRON
     Indication: MENORRHAGIA
  2. PLAN B ONE-STEP [Suspect]
     Active Substance: LEVONORGESTREL
     Indication: POST COITAL CONTRACEPTION
     Dates: start: 20170917, end: 20170917

REACTIONS (1)
  - Vaginal haemorrhage [Not Recovered/Not Resolved]

NARRATIVE: CASE EVENT DATE: 20170921
